FAERS Safety Report 4883097-4 (Version None)
Quarter: 2006Q1

REPORT INFORMATION
  Report Type: 
  Country: None (occurrence: None)
  Receive Date: 20060118
  Receipt Date: 20060109
  Transmission Date: 20060701
  Serious: Yes (Hospitalization)
  Sender: FDA-Public Use
  Company Number: US-JNJFOC-20060102306

PATIENT
  Sex: Female
  Weight: 90.72 kg

DRUGS (5)
  1. DURAGESIC-100 [Suspect]
     Route: 062
  2. FENTANYL [Suspect]
     Route: 062
     Dates: start: 20051001
  3. VICODIN [Concomitant]
  4. VICODIN [Concomitant]
  5. NORTRIPTYLINE HCL [Concomitant]

REACTIONS (4)
  - BACK DISORDER [None]
  - CYST REMOVAL [None]
  - HYPERHIDROSIS [None]
  - SPINAL FUSION SURGERY [None]
